FAERS Safety Report 24160600 (Version 1)
Quarter: 2024Q3

REPORT INFORMATION
  Report Type: Report from Study
  Country: CN (occurrence: None)
  Receive Date: 20240801
  Receipt Date: 20240801
  Transmission Date: 20241016
  Serious: Yes (Other)
  Sender: ENCUBE ETHICALS
  Company Number: CN-Encube-000846

PATIENT
  Age: 17 Year
  Sex: Female

DRUGS (4)
  1. TRIAMCINOLONE ACETONIDE [Suspect]
     Active Substance: TRIAMCINOLONE ACETONIDE
     Indication: Cystoid macular oedema
     Dosage: SUBTENON
  2. RANIBIZUMAB [Concomitant]
     Active Substance: RANIBIZUMAB
     Indication: Cystoid macular oedema
  3. ACETAZOLAMIDE [Concomitant]
     Active Substance: ACETAZOLAMIDE
     Indication: Cystoid macular oedema
     Route: 048
  4. ADALIMUMAB [Concomitant]
     Active Substance: ADALIMUMAB\ISOPROPYL ALCOHOL
     Indication: Cystoid macular oedema

REACTIONS (2)
  - Glaucoma [Unknown]
  - Off label use [Unknown]
